FAERS Safety Report 8915061 (Version 1)
Quarter: 2012Q4

REPORT INFORMATION
  Report Type: 
  Country: IT (occurrence: IT)
  Receive Date: 20121116
  Receipt Date: 20121116
  Transmission Date: 20130627
  Serious: Yes (Hospitalization)
  Sender: FDA-Public Use
  Company Number: IT-TEVA-369731ISR

PATIENT
  Age: 60 Year
  Sex: Male

DRUGS (3)
  1. METOTRESSATO TEVA [Suspect]
     Indication: RHEUMATOID ARTHRITIS
     Dates: start: 20000101, end: 20061231
  2. HUMIRA [Concomitant]
     Dosage: 40 mg/05.8 ml
  3. METILPREDNISOLONE [Concomitant]

REACTIONS (2)
  - Dyspnoea [Not Recovered/Not Resolved]
  - Pulmonary fibrosis [Not Recovered/Not Resolved]
